FAERS Safety Report 5886663-2 (Version None)
Quarter: 2008Q3

REPORT INFORMATION
  Report Type: 
  Country: None (occurrence: None)
  Receive Date: 20080917
  Receipt Date: 20080910
  Transmission Date: 20090109
  Serious: Yes (Other)
  Sender: FDA-Public Use
  Company Number: PHHY2008BR21151

PATIENT
  Sex: Female

DRUGS (2)
  1. ZELMAC [Suspect]
     Indication: GASTROINTESTINAL PAIN
     Dosage: UNK
     Route: 048
     Dates: start: 20030101
  2. ZELMAC [Suspect]
     Indication: FLATULENCE
     Dosage: UNK
     Route: 048

REACTIONS (6)
  - BLOOD GLUCOSE INCREASED [None]
  - DIABETES MELLITUS [None]
  - DIARRHOEA [None]
  - FLATULENCE [None]
  - GASTROINTESTINAL DISORDER [None]
  - GASTROINTESTINAL PAIN [None]
